FAERS Safety Report 25004108 (Version 1)
Quarter: 2025Q1

REPORT INFORMATION
  Report Type: Report from Study
  Country: BR (occurrence: BR)
  Receive Date: 20250224
  Receipt Date: 20250224
  Transmission Date: 20250408
  Serious: Yes (Other)
  Sender: JOHNSON AND JOHNSON
  Company Number: BR-JNJFOC-20250252483

PATIENT
  Age: 56 Year
  Sex: Female
  Weight: 175 kg

DRUGS (1)
  1. INFLIXIMAB [Suspect]
     Active Substance: INFLIXIMAB
     Indication: Ankylosing spondylitis
     Route: 041

REACTIONS (4)
  - Tuberculosis [Unknown]
  - Pruritus [Unknown]
  - Toxicity to various agents [Unknown]
  - Infusion related reaction [Unknown]
